FAERS Safety Report 18909290 (Version 1)
Quarter: 2021Q1

REPORT INFORMATION
  Report Type: Spontaneous
  Country: US (occurrence: US)
  Receive Date: 20210218
  Receipt Date: 20210218
  Transmission Date: 20210420
  Serious: Yes (Other)
  Sender: FDA-Public Use
  Company Number: US-GLAXOSMITHKLINE-US2021040295

PATIENT
  Sex: Female

DRUGS (1)
  1. BREO ELLIPTA [Suspect]
     Active Substance: FLUTICASONE FUROATE\VILANTEROL TRIFENATATE
     Indication: CHRONIC OBSTRUCTIVE PULMONARY DISEASE
     Dosage: 1 PUFF(S), QD, 200/25
     Route: 055

REACTIONS (5)
  - Chest pain [Recovered/Resolved]
  - Seizure [Unknown]
  - Strabismus [Not Recovered/Not Resolved]
  - Blood pressure increased [Unknown]
  - Extraocular muscle paresis [Unknown]
